FAERS Safety Report 19109287 (Version 1)
Quarter: 2021Q2

REPORT INFORMATION
  Report Type: Report from Study
  Country: ES (occurrence: ES)
  Receive Date: 20210409
  Receipt Date: 20210409
  Transmission Date: 20210717
  Serious: Yes (Other)
  Sender: FDA-Public Use
  Company Number: ES-AUROBINDO-AUR-APL-2019-080233

PATIENT
  Age: 37 Year
  Sex: Female

DRUGS (7)
  1. DIPYRONE [Suspect]
     Active Substance: DIPYRONE
     Indication: PRODUCT USED FOR UNKNOWN INDICATION
     Dosage: UNK
     Route: 065
  2. ACETYLSALICYLIC ACID [Suspect]
     Active Substance: ASPIRIN
     Dosage: DAY 2 500MG
     Route: 048
  3. IBUPROFEN. [Suspect]
     Active Substance: IBUPROFEN
     Indication: PRODUCT USED FOR UNKNOWN INDICATION
     Dosage: UNK
     Route: 065
  4. TRIFLUSAL [Concomitant]
     Active Substance: TRIFLUSAL
     Dosage: DAY 2 300, 600MG
     Route: 048
  5. ACETYLSALICYLIC ACID [Suspect]
     Active Substance: ASPIRIN
     Dosage: UNK
     Route: 048
  6. TRIFLUSAL [Concomitant]
     Active Substance: TRIFLUSAL
     Indication: DRUG PROVOCATION TEST
     Dosage: DAY 1 75, 150, 300MG
     Route: 048
  7. ACETYLSALICYLIC ACID [Suspect]
     Active Substance: ASPIRIN
     Indication: DRUG PROVOCATION TEST
     Dosage: DAY 1 50, 125, 250MG
     Route: 048

REACTIONS (3)
  - Type I hypersensitivity [Unknown]
  - Urticaria [Unknown]
  - Angioedema [Unknown]
